FAERS Safety Report 24364293 (Version 1)
Quarter: 2024Q3

REPORT INFORMATION
  Report Type: Report from Study
  Country: UY (occurrence: UY)
  Receive Date: 20240925
  Receipt Date: 20240925
  Transmission Date: 20241017
  Serious: Yes (Hospitalization)
  Sender: ABBVIE
  Company Number: UY-ABBVIE-5852363

PATIENT
  Age: 51 Year
  Sex: Male

DRUGS (2)
  1. HUMIRA [Suspect]
     Active Substance: ADALIMUMAB
     Indication: Ankylosing spondylitis
     Dosage: FORM STRENGTH: 40 MILLIGRAM
     Route: 058
     Dates: start: 20201010
  2. HUMIRA [Suspect]
     Active Substance: ADALIMUMAB
     Dosage: FORM STRENGTH: 40 MILLIGRAM
     Route: 058
     Dates: start: 20240915

REACTIONS (4)
  - Diabetes mellitus [Unknown]
  - Arthralgia [Not Recovered/Not Resolved]
  - Malaise [Unknown]
  - Facial pain [Recovered/Resolved]

NARRATIVE: CASE EVENT DATE: 20240709
